FAERS Safety Report 4399481-1 (Version None)
Quarter: 2004Q2

REPORT INFORMATION
  Report Type: 
  Country: None (occurrence: None)
  Receive Date: 20040621
  Receipt Date: 20031105
  Transmission Date: 20050107
  Serious: Yes (Other)
  Sender: FDA-Public Use
  Company Number: USA-2003-0006722

PATIENT
  Age: 50 Year
  Sex: Female
  Weight: 111.1 kg

DRUGS (8)
  1. OXYCONTIN [Suspect]
     Indication: BACK PAIN
     Dosage: 10 MG, Q12H, PRN
  2. OXYCODONE HCL [Suspect]
     Indication: BACK PAIN
  3. NEURONTIN [Concomitant]
  4. BACLOFEN [Concomitant]
  5. LORCET-HD [Concomitant]
  6. CELEBREX [Concomitant]
  7. TRAZODONE HCL [Concomitant]
  8. REMERON [Concomitant]

REACTIONS (11)
  - ABDOMINAL PAIN [None]
  - ARTHRALGIA [None]
  - ASTHENIA [None]
  - DEPRESSION [None]
  - DRUG DEPENDENCE [None]
  - EMOTIONAL DISTRESS [None]
  - HEADACHE [None]
  - OEDEMA PERIPHERAL [None]
  - PAIN [None]
  - PAIN IN EXTREMITY [None]
  - SLEEP DISORDER [None]
